FAERS Safety Report 9735407 (Version 1)
Quarter: 2013Q4

REPORT INFORMATION
  Report Type: Spontaneous
  Country: US (occurrence: None)
  Receive Date: 20131205
  Receipt Date: 20131205
  Transmission Date: 20140711
  Serious: No
  Sender: FDA-Public Use
  Company Number: None

PATIENT
  Sex: 0

DRUGS (2)
  1. DIAPER RASH PASTE [Suspect]
     Indication: DERMATITIS DIAPER
     Dosage: RUBBED ON SKIN
     Route: 061
  2. DIAPER RASH PASTE [Suspect]
     Indication: PROPHYLAXIS
     Dosage: RUBBED ON SKIN
     Route: 061

REACTIONS (4)
  - Application site erosion [None]
  - Application site erythema [None]
  - Application site pain [None]
  - Product quality issue [None]
